FAERS Safety Report 8895637 (Version 2)
Quarter: 2012Q4

REPORT INFORMATION
  Report Type: 
  Country: SE (occurrence: SE)
  Receive Date: 20121108
  Receipt Date: 20121130
  Transmission Date: 20130627
  Serious: Yes (Other)
  Sender: FDA-Public Use
  Company Number: SE-PFIZER INC-2012276747

PATIENT
  Age: 62 Year
  Sex: Female

DRUGS (1)
  1. FOLACIN [Suspect]

REACTIONS (1)
  - Sudden onset of sleep [Unknown]
